FAERS Safety Report 8155755-X (Version None)
Quarter: 2012Q1

REPORT INFORMATION
  Report Type: 
  Country: None (occurrence: None)
  Receive Date: 20120215
  Receipt Date: 20120207
  Transmission Date: 20120608
  Serious: Yes (Death)
  Sender: FDA-Public Use
  Company Number: ADR-2012-00319

PATIENT
  Age: 79 Year

DRUGS (1)
  1. BACLOFEN [Suspect]

REACTIONS (3)
  - CONCOMITANT DISEASE PROGRESSION [None]
  - DISEASE COMPLICATION [None]
  - PNEUMONIA ASPIRATION [None]
